FAERS Safety Report 9321165 (Version 1)
Quarter: 2013Q2

REPORT INFORMATION
  Report Type: Spontaneous
  Country: US (occurrence: US)
  Receive Date: 20130531
  Receipt Date: 20130531
  Transmission Date: 20140414
  Serious: No
  Sender: FDA-Public Use
  Company Number: US-009507513-1305USA017532

PATIENT
  Sex: Female

DRUGS (4)
  1. REBETOL [Suspect]
     Indication: HEPATITIS C
     Dosage: UNK
     Route: 048
     Dates: start: 20010601, end: 20011206
  2. REBETOL [Suspect]
     Dosage: UNK
     Route: 048
     Dates: start: 20030103, end: 20030606
  3. INTRON A [Suspect]
     Indication: HEPATITIS C
     Dosage: UNK UNK, Q3W
     Dates: start: 20010601, end: 20011206
  4. PEGINTRON [Suspect]
     Indication: HEPATITIS C
     Dosage: UNK
     Dates: start: 20030103, end: 20030606

REACTIONS (2)
  - Therapeutic response decreased [Unknown]
  - Therapeutic response decreased [Unknown]
